FAERS Safety Report 15566173 (Version 6)
Quarter: 2019Q2

REPORT INFORMATION
  Report Type: Report from Study
  Country: GB (occurrence: GB)
  Receive Date: 20181030
  Receipt Date: 20190514
  Transmission Date: 20190711
  Serious: Yes (Other)
  Sender: FDA-Public Use
  Company Number: GB-PFIZER INC-2018441633

PATIENT
  Age: 10 Year
  Sex: Female

DRUGS (7)
  1. ETANERCEPT [Suspect]
     Active Substance: ETANERCEPT
     Indication: JUVENILE IDIOPATHIC ARTHRITIS
     Dosage: UNK
  2. METHOTREXATE SODIUM. [Suspect]
     Active Substance: METHOTREXATE SODIUM
     Indication: JUVENILE IDIOPATHIC ARTHRITIS
     Dosage: UNK
  3. TOCILIZUMAB. [Suspect]
     Active Substance: TOCILIZUMAB
     Indication: JUVENILE IDIOPATHIC ARTHRITIS
     Dosage: UNK
  4. THALIDOMIDE [Suspect]
     Active Substance: THALIDOMIDE
     Indication: JUVENILE IDIOPATHIC ARTHRITIS
     Dosage: UNK
  5. CYCLOSPORIN [Suspect]
     Active Substance: CYCLOSPORINE
     Indication: JUVENILE IDIOPATHIC ARTHRITIS
     Dosage: UNK
  6. ANAKINRA [Suspect]
     Active Substance: ANAKINRA
     Indication: JUVENILE IDIOPATHIC ARTHRITIS
     Dosage: UNK
  7. TACROLIMUS. [Suspect]
     Active Substance: TACROLIMUS
     Indication: JUVENILE IDIOPATHIC ARTHRITIS
     Dosage: UNK

REACTIONS (1)
  - Growth failure [Unknown]
